FAERS Safety Report 9974104 (Version 3)
Quarter: 2014Q2

REPORT INFORMATION
  Report Type: Spontaneous
  Country: BR (occurrence: BR)
  Receive Date: 20140306
  Receipt Date: 20140521
  Transmission Date: 20141212
  Serious: Yes (Other)
  Sender: FDA-Public Use
  Company Number: BR-GLAXOSMITHKLINE-A1063738A

PATIENT
  Sex: Female

DRUGS (1)
  1. AEROLIN [Suspect]
     Indication: ASTHMATIC CRISIS
     Route: 055
     Dates: start: 2012

REACTIONS (2)
  - Asthmatic crisis [Not Recovered/Not Resolved]
  - Product quality issue [Unknown]
